FAERS Safety Report 10191385 (Version 2)
Quarter: 2014Q2

REPORT INFORMATION
  Report Type: Spontaneous
  Country: US (occurrence: US)
  Receive Date: 20140523
  Receipt Date: 20140523
  Transmission Date: 20141212
  Serious: Yes (Other)
  Sender: FDA-Public Use
  Company Number: US-PFIZER INC-2014140357

PATIENT
  Age: 51 Year
  Sex: Male
  Weight: 140.62 kg

DRUGS (10)
  1. IBUPROFEN [Suspect]
     Indication: ANKYLOSING SPONDYLITIS
     Route: 048
  2. REMICADE [Suspect]
     Indication: ANKYLOSING SPONDYLITIS
     Dosage: 700 MG, UNK
     Route: 042
     Dates: end: 20140317
  3. REMICADE [Suspect]
     Route: 042
     Dates: start: 20131002
  4. REMICADE [Suspect]
     Dosage: 700 MG, UNK
     Route: 042
     Dates: start: 20130827
  5. REMICADE [Suspect]
     Dosage: 700 MG, UNK
     Route: 042
     Dates: start: 20130812
  6. REMICADE [Suspect]
     Dosage: 700 MG, UNK
     Route: 042
     Dates: start: 20120601, end: 20120601
  7. AMLODIPINE [Concomitant]
     Indication: HYPERTENSION
     Dosage: 10 MG, UNK
     Route: 065
     Dates: start: 20130210
  8. HYDROCODONE APAP [Concomitant]
     Indication: ANKYLOSING SPONDYLITIS
     Route: 065
  9. METOPROLOL [Concomitant]
     Indication: HYPERTENSION
     Route: 065
  10. HYDROCHLOROTHIAZIDE / LOSARTAN [Concomitant]
     Indication: HYPERTENSION
     Dosage: 100 MG, 1X/DAY
     Route: 065

REACTIONS (2)
  - Hypertension [Recovered/Resolved]
  - Infusion related reaction [Recovered/Resolved]
